FAERS Safety Report 8115317-7 (Version None)
Quarter: 2012Q1

REPORT INFORMATION
  Report Type: 
  Country: None (occurrence: None)
  Receive Date: 20120206
  Receipt Date: 20120125
  Transmission Date: 20120608
  Serious: Yes (Other)
  Sender: FDA-Public Use
  Company Number: US-JNJFOC-20120112774

PATIENT
  Age: 11 Year
  Sex: Male
  Weight: 28.58 kg

DRUGS (2)
  1. ACETAMINOPHEN [Suspect]
     Indication: HEADACHE
     Route: 048
     Dates: start: 20120123, end: 20120123
  2. ACETAMINOPHEN [Suspect]
     Route: 048

REACTIONS (4)
  - ERYTHEMA [None]
  - SWELLING FACE [None]
  - SNEEZING [None]
  - URTICARIA [None]
